FAERS Safety Report 25940435 (Version 1)
Quarter: 2025Q4

REPORT INFORMATION
  Report Type: Report from Study
  Country: US (occurrence: US)
  Receive Date: 20251020
  Receipt Date: 20251020
  Transmission Date: 20260117
  Serious: Yes (Other)
  Sender: EMD SERONO INC
  Company Number: US-Merck Healthcare KGaA-9328375

PATIENT
  Age: 27 Year
  Sex: Female

DRUGS (3)
  1. MAVENCLAD [Suspect]
     Active Substance: CLADRIBINE
     Indication: Multiple sclerosis
     Dosage: YEAR ONE MONTH ONE THERAPY
     Dates: start: 20210604, end: 20210608
  2. MAVENCLAD [Suspect]
     Active Substance: CLADRIBINE
     Dosage: YEAR ONE MONTH TWO THERAPY
     Dates: start: 20210705, end: 20210709
  3. SLYND [Concomitant]
     Active Substance: DROSPIRENONE
     Indication: Contraception

REACTIONS (1)
  - Polycystic ovarian syndrome [Unknown]

NARRATIVE: CASE EVENT DATE: 20210601
